FAERS Safety Report 4561319-7 (Version None)
Quarter: 2005Q1

REPORT INFORMATION
  Report Type: 
  Country: None (occurrence: None)
  Receive Date: 20050121
  Receipt Date: 20041230
  Transmission Date: 20050727
  Serious: Yes (Hospitalization)
  Sender: FDA-Public Use
  Company Number: 6012400

PATIENT
  Age: 76 Year
  Sex: Female

DRUGS (6)
  1. METFORMIN HCL [Suspect]
     Indication: DIABETES MELLITUS
     Dosage: 2550 MG (850 MG, 3 IN 1 D)
     Route: 048
     Dates: start: 20040709
  2. BACTRIM [Suspect]
     Indication: CYSTITIS
     Route: 048
     Dates: start: 20040701, end: 20040709
  3. GLIBENCLAMIDE (2.5 MG) [Suspect]
     Indication: DIABETES MELLITUS
     Dosage: 7.5 MG (2.5 MG, 3 IN 1 D)
     Route: 048
     Dates: end: 20040709
  4. COZAAR [Concomitant]
  5. NICARDIPINE HCL [Concomitant]
  6. SERETIDE [Concomitant]

REACTIONS (10)
  - ANAEMIA [None]
  - BLOOD CREATININE INCREASED [None]
  - CEREBELLAR ATAXIA [None]
  - DRUG INTERACTION [None]
  - HEADACHE [None]
  - HYPERKALAEMIA [None]
  - HYPOGLYCAEMIA [None]
  - INFECTION [None]
  - MUSCULAR WEAKNESS [None]
  - TREMOR [None]
